FAERS Safety Report 6454729-4 (Version None)
Quarter: 2009Q4

REPORT INFORMATION
  Report Type: 
  Country: None (occurrence: None)
  Receive Date: 20091118
  Receipt Date: 20091110
  Transmission Date: 20100525
  Serious: Yes (Other)
  Sender: FDA-Public Use
  Company Number: CL-69-2009

PATIENT
  Age: 42 Year
  Sex: Female

DRUGS (1)
  1. METRONIDAZOLE [Suspect]
     Indication: APPENDICITIS
     Dosage: 500MG INTRAVENOUS
     Route: 042
     Dates: start: 20091027, end: 20091028

REACTIONS (1)
  - ANAPHYLACTIC SHOCK [None]
